FAERS Safety Report 14124749 (Version 2)
Quarter: 2018Q1

REPORT INFORMATION
  Report Type: Spontaneous
  Country: GB (occurrence: GB)
  Receive Date: 20171025
  Receipt Date: 20180112
  Transmission Date: 20180508
  Serious: Yes (Hospitalization)
  Sender: FDA-Public Use
  Company Number: NL-SAOL THERAPEUTICS-2017SAO01641

PATIENT

DRUGS (3)
  1. BACLOFEN. [Suspect]
     Active Substance: BACLOFEN
     Dosage: 300 ?G, \DAY
     Route: 037
  2. BACLOFEN. [Suspect]
     Active Substance: BACLOFEN
     Dosage: 18.6 ?G, \DAY
  3. BACLOFEN. [Suspect]
     Active Substance: BACLOFEN
     Dosage: 18.5 ?G, \DAY
     Route: 037

REACTIONS (3)
  - Urinary tract infection [Unknown]
  - Device failure [Unknown]
  - Malaise [Unknown]
